FAERS Safety Report 4681825-4 (Version None)
Quarter: 2005Q2

REPORT INFORMATION
  Report Type: 
  Country: None (occurrence: None)
  Receive Date: 20050602
  Receipt Date: 20050524
  Transmission Date: 20051028
  Serious: Yes (Hospitalization)
  Sender: FDA-Public Use
  Company Number: 2005-04-1913

PATIENT
  Age: 52 Year
  Sex: Female
  Weight: 55 kg

DRUGS (11)
  1. INTRON A [Suspect]
     Indication: HEPATITIS C
     Dosage: SEE IMAGE
     Route: 030
     Dates: start: 20031010, end: 20031023
  2. INTRON A [Suspect]
     Indication: HEPATITIS C
     Dosage: SEE IMAGE
     Route: 030
     Dates: start: 20031010, end: 20040324
  3. INTRON A [Suspect]
     Indication: HEPATITIS C
     Dosage: SEE IMAGE
     Route: 030
     Dates: start: 20031025, end: 20040324
  4. REBETOL [Suspect]
     Indication: HEPATITIS C
     Dosage: 600 MG ORAL
     Route: 048
     Dates: start: 20031010, end: 20040324
  5. KOLANTYL GRANULES [Concomitant]
  6. TAGAMET [Concomitant]
  7. BERIZYM GRANULES [Concomitant]
  8. TAKA-DIASTASE [Concomitant]
  9. LAC B [Concomitant]
  10. GLUCONSAN K GRANULES [Concomitant]
  11. URSO TABLETS [Concomitant]

REACTIONS (3)
  - ANOREXIA [None]
  - CONDITION AGGRAVATED [None]
  - HYPOKALAEMIA [None]
